FAERS Safety Report 6120398-6 (Version None)
Quarter: 2009Q1

REPORT INFORMATION
  Report Type: 
  Country: None (occurrence: None)
  Receive Date: 20090317
  Receipt Date: 20090304
  Transmission Date: 20090719
  Serious: Yes (Other)
  Sender: FDA-Public Use
  Company Number: PHHY2009IN08519

PATIENT
  Age: 21 Year
  Sex: Female

DRUGS (5)
  1. CARBAMAZEPINE [Suspect]
     Dosage: 400 MG/DAY
  2. CARBAMAZEPINE [Suspect]
     Dosage: 1200 MG/DAY
  3. TOPIRAMATE [Interacting]
     Indication: GRAND MAL CONVULSION
     Dosage: 50 MG/DAY
  4. TOPIRAMATE [Interacting]
     Dosage: 150 MG/DAY
  5. CLOBAZAM [Concomitant]
     Dosage: 15 MG/DAY

REACTIONS (2)
  - DRUG INEFFECTIVE [None]
  - VISUAL FIELD DEFECT [None]
